FAERS Safety Report 6258124-2 (Version None)
Quarter: 2009Q3

REPORT INFORMATION
  Report Type: 
  Country: None (occurrence: None)
  Receive Date: 20090702
  Receipt Date: 20090702
  Transmission Date: 20100115
  Serious: No
  Sender: FDA-Public Use
  Company Number: None

PATIENT
  Sex: Male
  Weight: 113.5 kg

DRUGS (5)
  1. CASODEX [Suspect]
     Dosage: 50 MG
     Dates: start: 20071119, end: 20080317
  2. TAXOTERE [Suspect]
     Dosage: 1087 MG
     Dates: start: 20080418, end: 20080801
  3. LEUPROLIDE ACETATE [Suspect]
     Dosage: 10.8 MG
     Dates: start: 20071119
  4. PREDNISONE TAB [Suspect]
     Dosage: 10 MG
     Dates: start: 20080418, end: 20080822
  5. VARDENAFIL HCL [Concomitant]

REACTIONS (6)
  - DECREASED APPETITE [None]
  - DIABETES MELLITUS INADEQUATE CONTROL [None]
  - DIABETIC KETOACIDOSIS [None]
  - MYOCARDIAL INFARCTION [None]
  - NAUSEA [None]
  - WEIGHT DECREASED [None]
